FAERS Safety Report 14537339 (Version 1)
Quarter: 2018Q1

REPORT INFORMATION
  Report Type: Report from Study
  Country: US (occurrence: US)
  Receive Date: 20180215
  Receipt Date: 20180215
  Transmission Date: 20180509
  Serious: Yes (Other)
  Sender: FDA-Public Use
  Company Number: PHEH2018US005464

PATIENT
  Sex: Female

DRUGS (1)
  1. GILENYA [Suspect]
     Active Substance: FINGOLIMOD HYDROCHLORIDE
     Indication: MULTIPLE SCLEROSIS RELAPSE
     Dosage: 0.5 MG, QD
     Route: 048

REACTIONS (8)
  - Red blood cell count decreased [Unknown]
  - Dizziness [Recovering/Resolving]
  - Babesiosis [Unknown]
  - Arthropod bite [Unknown]
  - Fatigue [Unknown]
  - Lymphocyte count decreased [Unknown]
  - Bone marrow disorder [Unknown]
  - Human ehrlichiosis [Unknown]

NARRATIVE: CASE EVENT DATE: 201708
